FAERS Safety Report 8448453-6 (Version None)
Quarter: 2012Q2

REPORT INFORMATION
  Report Type: 
  Country: None (occurrence: None)
  Receive Date: 20120619
  Receipt Date: 20120608
  Transmission Date: 20120825
  Serious: Yes (Other)
  Sender: FDA-Public Use
  Company Number: US-ROCHE-1076620

PATIENT
  Age: 63 Year
  Sex: Female

DRUGS (3)
  1. BONIVA [Suspect]
     Indication: OSTEOPENIA
     Dates: start: 20080414
  2. BONIVA [Suspect]
     Dates: start: 20081006
  3. BONIVA [Suspect]
     Dates: start: 20080713

REACTIONS (1)
  - FEMUR FRACTURE [None]
